FAERS Safety Report 9859763 (Version 1)
Quarter: 2014Q1

REPORT INFORMATION
  Report Type: Spontaneous
  Country: US (occurrence: US)
  Receive Date: 20140131
  Receipt Date: 20140131
  Transmission Date: 20141002
  Serious: Yes (Other)
  Sender: FDA-Public Use
  Company Number: PHHY2014US009363

PATIENT
  Age: 50 Year
  Sex: Female

DRUGS (1)
  1. ALENDRONIC ACID [Suspect]

REACTIONS (3)
  - Bone marrow oedema [Unknown]
  - Osteosclerosis [Unknown]
  - Femur fracture [Unknown]
